FAERS Safety Report 19386092 (Version 2)
Quarter: 2022Q1

REPORT INFORMATION
  Report Type: Spontaneous
  Country: ES (occurrence: ES)
  Receive Date: 20210608
  Receipt Date: 20220302
  Transmission Date: 20220423
  Serious: Yes (Hospitalization)
  Sender: FDA-Public Use
  Company Number: None

PATIENT
  Age: 59 Year
  Sex: Female
  Weight: 80 kg

DRUGS (5)
  1. OMEPRAZOLE [Suspect]
     Active Substance: OMEPRAZOLE
     Dosage: (2141A)
     Route: 065
     Dates: start: 2021, end: 2021
  2. ENALAPRIL MALEATE\HYDROCHLOROTHIAZIDE [Suspect]
     Active Substance: ENALAPRIL MALEATE\HYDROCHLOROTHIAZIDE
     Indication: Hypertension
     Route: 048
     Dates: start: 2020, end: 2021
  3. IBUPROFEN [Suspect]
     Active Substance: IBUPROFEN
     Dosage: (1769A)
     Route: 065
     Dates: start: 2021, end: 2021
  4. LIDOCAINE [Suspect]
     Active Substance: LIDOCAINE
     Dosage: (48A)
     Route: 065
     Dates: start: 20210516, end: 20210516
  5. MEPIVACAINE [Suspect]
     Active Substance: MEPIVACAINE HYDROCHLORIDE
     Dosage: (1909A)
     Route: 065
     Dates: start: 20210516, end: 20210516

REACTIONS (2)
  - Eosinophilia [Recovering/Resolving]
  - Rash [Recovering/Resolving]

NARRATIVE: CASE EVENT DATE: 20210516
